FAERS Safety Report 18084637 (Version 2)
Quarter: 2020Q3

REPORT INFORMATION
  Report Type: Spontaneous
  Country: JP (occurrence: JP)
  Receive Date: 20200729
  Receipt Date: 20200827
  Transmission Date: 20201103
  Serious: Yes (Hospitalization)
  Sender: FDA-Public Use
  Company Number: JP-IPSEN BIOPHARMACEUTICALS, INC.-2020-13382

PATIENT
  Age: 72 Year
  Sex: Male

DRUGS (3)
  1. ONIVYDE [Suspect]
     Active Substance: IRINOTECAN HYDROCHLORIDE
     Indication: PANCREATIC CARCINOMA
     Dosage: 50 MG/M2
     Route: 042
     Dates: start: 20200709
  2. CALCIUM LEVOFOLINATE [Suspect]
     Active Substance: LEVOLEUCOVORIN CALCIUM
     Indication: PANCREATIC CARCINOMA
     Dosage: 200 MG/M2
     Route: 042
     Dates: start: 20200709
  3. FLUOROURACIL. [Suspect]
     Active Substance: FLUOROURACIL
     Indication: PANCREATIC CARCINOMA
     Dosage: 1800 MG/M2
     Route: 042
     Dates: start: 20200709

REACTIONS (3)
  - Neutrophil count decreased [Recovered/Resolved]
  - Diarrhoea [Recovering/Resolving]
  - Constipation [Recovering/Resolving]

NARRATIVE: CASE EVENT DATE: 202007
